FAERS Safety Report 18478135 (Version 1)
Quarter: 2020Q4

REPORT INFORMATION
  Report Type: Spontaneous
  Country: US (occurrence: US)
  Receive Date: 20201108
  Receipt Date: 20201108
  Transmission Date: 20210114
  Serious: No
  Sender: FDA-Public Use
  Company Number: US-009507513-2011USA002233

PATIENT
  Age: 26 Year
  Sex: Male

DRUGS (3)
  1. PREGNYL [Suspect]
     Active Substance: CHORIOGONADOTROPIN ALFA
     Indication: PSEUDOHYPOPARATHYROIDISM
  2. STERILE DILUENT (WATER) [Suspect]
     Active Substance: WATER
     Dosage: UNK UNK, TIW
     Route: 030
     Dates: start: 20200825
  3. PREGNYL [Suspect]
     Active Substance: CHORIOGONADOTROPIN ALFA
     Indication: HYPOPARATHYROIDISM
     Dosage: STRENGTH: 10,000U/V (10 ML/VL);DOSE: 2,000 (UNITS UNSPECIFIED), THREE TIMES A WEEK
     Route: 030
     Dates: start: 20200825

REACTIONS (2)
  - Nausea [Unknown]
  - Product use in unapproved indication [Unknown]

NARRATIVE: CASE EVENT DATE: 2020
